FAERS Safety Report 5222918-2 (Version None)
Quarter: 2007Q1

REPORT INFORMATION
  Report Type: 
  Country: None (occurrence: None)
  Receive Date: 20070123
  Receipt Date: 20070118
  Transmission Date: 20070707
  Serious: Yes (Other)
  Sender: FDA-Public Use
  Company Number: CAWYE300220OCT06

PATIENT
  Age: 35 Year
  Sex: Female

DRUGS (3)
  1. ALESSE-28 (LEVONORGESTREL/ETHINYL ESTRADIOL/INERT, TABLET)         LOT [Suspect]
     Indication: CONTRACEPTION
     Dosage: 1 TABLET DAILY ORAL
     Route: 048
     Dates: start: 20060701, end: 20061001
  2. SYNTHROID [Concomitant]
  3. MULTIVITAMINS, PLAIN (MULTIVITAMINS, PLAIN) [Concomitant]

REACTIONS (4)
  - ABORTION SPONTANEOUS [None]
  - DRUG INEFFECTIVE [None]
  - METRORRHAGIA [None]
  - UNINTENDED PREGNANCY [None]
